FAERS Safety Report 11268900 (Version 2)
Quarter: 2015Q3

REPORT INFORMATION
  Report Type: Spontaneous
  Country: FI (occurrence: FI)
  Receive Date: 20150714
  Receipt Date: 20150831
  Transmission Date: 20151125
  Serious: Yes (Hospitalization, Other)
  Sender: FDA-Public Use
  Company Number: FI-ASTRAZENECA-2015SE65886

PATIENT
  Age: 65 Year
  Sex: Male

DRUGS (10)
  1. FORXIGA [Suspect]
     Active Substance: DAPAGLIFLOZIN
     Indication: TYPE 2 DIABETES MELLITUS
     Route: 048
     Dates: start: 20150301, end: 20150608
  2. TRAMAL [Concomitant]
     Active Substance: TRAMADOL
     Dosage: ORION
     Route: 048
  3. SOMAC [Concomitant]
     Active Substance: PANTOPRAZOLE SODIUM
     Dosage: TAKEDA GMBH
     Route: 048
  4. VENTOLINE EVOHALER [Concomitant]
     Active Substance: ALBUTEROL SULFATE
     Dosage: GLAXOSMITHKLINE
     Route: 055
  5. EXPROS [Concomitant]
     Dosage: ASTELLAS
     Route: 048
  6. MAREVAN FORTE [Concomitant]
     Active Substance: WARFARIN SODIUM
     Dosage: ORION
     Route: 048
  7. ORLOC [Concomitant]
     Active Substance: BISOPROLOL FUMARATE
     Dosage: ORION, 2.5 MG, EVERY DAY
     Route: 048
  8. NOVORAPID [Concomitant]
     Active Substance: INSULIN ASPART
     Indication: TYPE 2 DIABETES MELLITUS
     Dosage: NOVO NORDISK- PRE-FILLED PEN
     Route: 058
  9. SERETIDE [Concomitant]
     Active Substance: FLUTICASONE FUROATE\SALMETEROL XINAFOATE
     Dosage: GLAXOSMITHKLINE
     Route: 055
  10. LANTUS [Concomitant]
     Active Substance: INSULIN GLARGINE
     Indication: TYPE 2 DIABETES MELLITUS
     Dosage: SANOFI-A VENTIS- 120 IU EVERY DAY
     Route: 058

REACTIONS (6)
  - Ketosis [Not Recovered/Not Resolved]
  - C-reactive protein increased [Not Recovered/Not Resolved]
  - Diabetic ketoacidosis [Unknown]
  - Pancreatic enlargement [Not Recovered/Not Resolved]
  - Chest pain [Not Recovered/Not Resolved]
  - Abdominal pain [Not Recovered/Not Resolved]

NARRATIVE: CASE EVENT DATE: 20150606
